FAERS Safety Report 4956662-3 (Version None)
Quarter: 2006Q1

REPORT INFORMATION
  Report Type: 
  Country: None (occurrence: None)
  Receive Date: 20060329
  Receipt Date: 20060125
  Transmission Date: 20060701
  Serious: Yes (Hospitalization)
  Sender: FDA-Public Use
  Company Number: PHRM2006FR00650

PATIENT
  Age: 13 Year
  Sex: Male
  Weight: 44 kg

DRUGS (4)
  1. DEPAKENE [Concomitant]
     Dosage: 750 MG/DAY
     Route: 048
  2. ATARAX [Suspect]
     Dosage: 12.5 MG/DAY
  3. RITALIN [Suspect]
     Indication: ATTENTION DEFICIT/HYPERACTIVITY DISORDER
     Dosage: 20 MG/DAY
     Route: 048
     Dates: start: 20040901, end: 20060106
  4. LAMICTAL [Concomitant]
     Indication: EPILEPSY

REACTIONS (4)
  - BLOOD PRESSURE INCREASED [None]
  - CHEST PAIN [None]
  - HEADACHE [None]
  - SINUS TACHYCARDIA [None]
